FAERS Safety Report 7662664-9 (Version None)
Quarter: 2011Q3

REPORT INFORMATION
  Report Type: 
  Country: None (occurrence: None)
  Receive Date: 20110805
  Receipt Date: 20100823
  Transmission Date: 20111222
  Serious: No
  Sender: FDA-Public Use
  Company Number: US-ABBOTT-10P-163-0665989-00

PATIENT
  Sex: Male
  Weight: 99.88 kg

DRUGS (12)
  1. NIASPAN [Suspect]
     Indication: BLOOD CHOLESTEROL INCREASED
     Route: 048
     Dates: start: 20090101
  2. FOLIC ACID [Concomitant]
     Indication: PRODUCT USED FOR UNKNOWN INDICATION
  3. HERBAL SUPPLEMENTS [Concomitant]
     Indication: PHYTOTHERAPY
  4. MAGNESIUM [Concomitant]
     Indication: MINERAL SUPPLEMENTATION
  5. VITAMIN B-12 [Concomitant]
     Indication: VITAMIN B12
  6. COLESTID [Concomitant]
     Indication: BLOOD CHOLESTEROL INCREASED
  7. ATENOLOL [Concomitant]
     Indication: HYPERTENSION
  8. CRESTOR [Suspect]
     Indication: BLOOD CHOLESTEROL INCREASED
     Dates: start: 20080101
  9. RED YEAST RICE [Concomitant]
     Indication: BLOOD CHOLESTEROL INCREASED
  10. POTASSIUM GLUCONATE TAB [Concomitant]
     Indication: MINERAL SUPPLEMENTATION
  11. ASPIRIN [Concomitant]
     Indication: PRODUCT USED FOR UNKNOWN INDICATION
  12. MULTIPLE VITAMINS [Concomitant]
     Indication: VITAMIN SUPPLEMENTATION

REACTIONS (1)
  - MUSCULAR WEAKNESS [None]
